FAERS Safety Report 13447611 (Version 1)
Quarter: 2017Q2

REPORT INFORMATION
  Report Type: Spontaneous
  Country: US (occurrence: US)
  Receive Date: 20170414
  Receipt Date: 20170414
  Transmission Date: 20170830
  Serious: Yes (Death)
  Sender: FDA-Public Use
  Company Number: None

PATIENT
  Age: 87 Year
  Sex: Female

DRUGS (1)
  1. PROCRIT [Suspect]
     Active Substance: ERYTHROPOIETIN
     Dosage: 40,000
     Route: 058
     Dates: start: 20160415, end: 20161114

REACTIONS (2)
  - Nephropathy [None]
  - Cardiac failure congestive [None]

NARRATIVE: CASE EVENT DATE: 20161122
